FAERS Safety Report 13122707 (Version 2)
Quarter: 2017Q1

REPORT INFORMATION
  Report Type: Spontaneous
  Country: JP (occurrence: JP)
  Receive Date: 20170117
  Receipt Date: 20170201
  Transmission Date: 20170428
  Serious: Yes (Hospitalization)
  Sender: FDA-Public Use
  Company Number: JP-SEATTLE GENETICS-2017SGN00044

PATIENT

DRUGS (2)
  1. ADCETRIS [Suspect]
     Active Substance: BRENTUXIMAB VEDOTIN
     Indication: LYMPHOMA
     Dosage: UNK
     Route: 041
     Dates: start: 201606
  2. ADCETRIS [Suspect]
     Active Substance: BRENTUXIMAB VEDOTIN
     Indication: LYMPHOMA

REACTIONS (2)
  - White blood cell count decreased [Not Recovered/Not Resolved]
  - Hyperthermia [Not Recovered/Not Resolved]

NARRATIVE: CASE EVENT DATE: 201612
